FAERS Safety Report 5853642-0 (Version None)
Quarter: 2008Q3

REPORT INFORMATION
  Report Type: 
  Country: None (occurrence: None)
  Receive Date: 20080822
  Receipt Date: 20080808
  Transmission Date: 20090109
  Serious: Yes (Other)
  Sender: FDA-Public Use
  Company Number: IT-BAYER-200824225GPV

PATIENT
  Age: 14 Year
  Sex: Male

DRUGS (6)
  1. FLUDARABINE [Suspect]
     Indication: ACUTE MYELOID LEUKAEMIA
     Route: 065
  2. BUSULPHAN [Suspect]
     Indication: ACUTE MYELOID LEUKAEMIA
  3. ENDOXAN [Suspect]
     Indication: ACUTE MYELOID LEUKAEMIA
     Route: 065
  4. THIOTEPA [Suspect]
     Indication: ACUTE MYELOID LEUKAEMIA
     Route: 065
  5. THYMOGLOBULIN [Suspect]
     Indication: PROPHYLAXIS AGAINST GRAFT VERSUS HOST DISEASE
     Route: 065
  6. CYCLOSPORINE [Suspect]
     Indication: PROPHYLAXIS AGAINST GRAFT VERSUS HOST DISEASE
     Route: 065

REACTIONS (5)
  - ANAEMIA [None]
  - BK VIRUS INFECTION [None]
  - CYSTITIS HAEMORRHAGIC [None]
  - HYDRONEPHROSIS [None]
  - RENAL FAILURE [None]
